FAERS Safety Report 8101726-9 (Version None)
Quarter: 2012Q1

REPORT INFORMATION
  Report Type: 
  Country: None (occurrence: None)
  Receive Date: 20120131
  Receipt Date: 20120128
  Transmission Date: 20120608
  Serious: Yes (Other)
  Sender: FDA-Public Use
  Company Number: DE-AMGEN-DEUSP2012005891

PATIENT
  Sex: Female

DRUGS (6)
  1. VINCRISTINE [Concomitant]
     Indication: LEUKAEMIA
  2. DOXORUBICIN HCL [Concomitant]
     Indication: LEUKAEMIA
  3. NEULASTA [Suspect]
     Indication: CHEMOTHERAPY
     Dosage: 6 MG, PER CHEMO REGIM
  4. RITUXIMAB [Concomitant]
     Indication: LEUKAEMIA
  5. CYCLOPHOSPHAMIDE [Concomitant]
     Indication: LEUKAEMIA
  6. PREDNISONE TAB [Concomitant]
     Indication: LEUKAEMIA

REACTIONS (2)
  - DRUG INEFFECTIVE [None]
  - LEUKOPENIA [None]
